FAERS Safety Report 22366863 (Version 1)
Quarter: 2023Q2

REPORT INFORMATION
  Report Type: Spontaneous
  Country: US (occurrence: US)
  Receive Date: 20230525
  Receipt Date: 20230525
  Transmission Date: 20230721
  Serious: Yes (Other)
  Sender: FDA-Public Use
  Company Number: US-ABBVIE-5176443

PATIENT
  Sex: Female

DRUGS (2)
  1. SYNTHROID [Suspect]
     Active Substance: LEVOTHYROXINE SODIUM
     Indication: Hypothyroidism
     Route: 048
  2. LEVOTHYROXINE [Suspect]
     Active Substance: LEVOTHYROXINE
     Indication: Hypothyroidism
     Route: 048

REACTIONS (6)
  - Bone loss [Unknown]
  - Osteoporosis [Unknown]
  - Hysterectomy [Unknown]
  - Oophorectomy [Unknown]
  - Drug ineffective [Unknown]
  - Artificial menopause [Unknown]
